FAERS Safety Report 13057675 (Version 3)
Quarter: 2017Q2

REPORT INFORMATION
  Report Type: Spontaneous
  Country: ES (occurrence: ES)
  Receive Date: 20161223
  Receipt Date: 20170428
  Transmission Date: 20170830
  Serious: Yes (Hospitalization, Other)
  Sender: FDA-Public Use
  Company Number: ES-SUN PHARMACEUTICAL INDUSTRIES LTD-2016R1-129841

PATIENT
  Age: 28 Year
  Sex: Male

DRUGS (3)
  1. RISPERIDONE. [Concomitant]
     Active Substance: RISPERIDONE
     Indication: ATTENTION DEFICIT/HYPERACTIVITY DISORDER
     Dosage: 50 MG, FORTNIGHT
  2. RISPERIDONE. [Concomitant]
     Active Substance: RISPERIDONE
     Indication: PERSONALITY DISORDER
  3. METHYLPHENIDATE. [Suspect]
     Active Substance: METHYLPHENIDATE
     Indication: PRODUCT USED FOR UNKNOWN INDICATION
     Dosage: 600 MG, DAILY (30 TABLETS OF 20 MG/DAY)
     Route: 055

REACTIONS (3)
  - Withdrawal syndrome [Recovered/Resolved]
  - Dystonia [Recovered/Resolved]
  - Drug use disorder [Recovered/Resolved]
